FAERS Safety Report 6197780-4 (Version None)
Quarter: 2009Q2

REPORT INFORMATION
  Report Type: 
  Country: None (occurrence: None)
  Receive Date: 20090521
  Receipt Date: 20090512
  Transmission Date: 20091009
  Serious: Yes (Death)
  Sender: FDA-Public Use
  Company Number: PE-PFIZER INC-2009213766

PATIENT
  Age: 84 Year

DRUGS (1)
  1. ACCURETIC [Suspect]
     Indication: HYPERTENSION
     Dosage: 20 MG, 1X/DAY
     Dates: start: 20040901, end: 20090401

REACTIONS (1)
  - DEATH [None]
